FAERS Safety Report 4831789-5 (Version None)
Quarter: 2005Q4

REPORT INFORMATION
  Report Type: 
  Country: None (occurrence: None)
  Receive Date: 20051118
  Receipt Date: 20050923
  Transmission Date: 20060501
  Serious: Yes (Other)
  Sender: FDA-Public Use
  Company Number: US-MERCK-0509USA03912

PATIENT
  Sex: Female
  Weight: 68 kg

DRUGS (11)
  1. VIOXX [Suspect]
     Indication: OSTEOARTHRITIS
     Route: 048
     Dates: start: 20000905, end: 20041005
  2. PREMARIN [Concomitant]
     Route: 065
  3. PROZAC [Concomitant]
     Route: 065
  4. PREVACID [Concomitant]
     Route: 065
  5. FLEXERIL [Concomitant]
     Route: 065
  6. XANAX [Concomitant]
     Route: 065
  7. AMBIEN [Concomitant]
     Route: 065
  8. HYDROCODONE BITARTRATE [Concomitant]
     Route: 065
  9. FOLIC ACID [Concomitant]
     Route: 065
  10. MECLIZINE [Concomitant]
     Route: 065
  11. WELLBUTRIN [Concomitant]
     Route: 065

REACTIONS (16)
  - ABDOMINAL PAIN UPPER [None]
  - ADVERSE EVENT [None]
  - ANAEMIA [None]
  - BLADDER DISTENSION [None]
  - BLADDER PAIN [None]
  - CEREBROVASCULAR ACCIDENT [None]
  - CHOLELITHIASIS [None]
  - CHRONIC OBSTRUCTIVE PULMONARY DISEASE [None]
  - DEHYDRATION [None]
  - DEPRESSION [None]
  - DISORIENTATION [None]
  - GASTRIC DISORDER [None]
  - HYPOTENSION [None]
  - INTESTINAL SPASM [None]
  - NAUSEA [None]
  - PNEUMONIA [None]
